FAERS Safety Report 17284615 (Version 2)
Quarter: 2020Q1

REPORT INFORMATION
  Report Type: Report from Study
  Country: JP (occurrence: JP)
  Receive Date: 20200117
  Receipt Date: 20200317
  Transmission Date: 20200409
  Serious: Yes (Hospitalization)
  Sender: FDA-Public Use
  Company Number: JP-PFIZER INC-2020019098

PATIENT
  Age: 72 Year
  Sex: Female
  Weight: 48 kg

DRUGS (13)
  1. NEUROVITAN [CYANOCOBALAMIN;NICOTINAMIDE;PYRIDOXINE HYDROCHLORIDE;THIAM [Concomitant]
  2. METHOTREXATE SODIUM. [Suspect]
     Active Substance: METHOTREXATE SODIUM
     Dosage: 8 MG, WEEKLY
     Route: 048
     Dates: start: 20120226, end: 20190327
  3. FERRUM [IRON] [Concomitant]
  4. URSODEOXYCHOLIC ACID [Concomitant]
     Active Substance: URSODIOL
  5. OMEPRAZOLE. [Concomitant]
     Active Substance: OMEPRAZOLE
  6. OLUMIANT [Suspect]
     Active Substance: BARICITINIB
     Indication: RHEUMATOID ARTHRITIS
     Dosage: 2 MG, DAILY, GENERIC NAME REPORTED AS INFLIXIMAB
     Dates: start: 20191118
  7. OLUMIANT [Suspect]
     Active Substance: BARICITINIB
     Dosage: 2 MG, DAILY
     Dates: start: 20181204, end: 20191028
  8. FOLIC ACID. [Concomitant]
     Active Substance: FOLIC ACID
     Dosage: UNK
  9. MECOBALAMIN [Concomitant]
     Active Substance: METHYLCOBALAMIN
  10. NO SUBJECT DRUG [Suspect]
     Active Substance: UNSPECIFIED INGREDIENT
     Dosage: NO DOSE GIVEN
  11. METHOTREXATE SODIUM. [Suspect]
     Active Substance: METHOTREXATE SODIUM
     Indication: RHEUMATOID ARTHRITIS
     Dosage: 2 MG, WEEKLY
     Route: 048
     Dates: start: 20190327, end: 20191028
  12. CARERAM [Suspect]
     Active Substance: IGURATIMOD
     Indication: RHEUMATOID ARTHRITIS
     Dosage: 25 MG, 2X/DAY
     Dates: start: 20141105
  13. EDIROL [Concomitant]
     Active Substance: ELDECALCITOL

REACTIONS (1)
  - Oral neoplasm [Recovering/Resolving]

NARRATIVE: CASE EVENT DATE: 20190926
